FAERS Safety Report 18908149 (Version 2)
Quarter: 2021Q4

REPORT INFORMATION
  Report Type: Spontaneous
  Country: JP (occurrence: None)
  Receive Date: 20210218
  Receipt Date: 20211103
  Transmission Date: 20220303
  Serious: Yes (Hospitalization, Other)
  Sender: FDA-Public Use
  Company Number: 2020SF36329

PATIENT
  Age: 73 Year
  Sex: Male
  Weight: 56 kg

DRUGS (14)
  1. IMFINZI [Suspect]
     Active Substance: DURVALUMAB
     Indication: Small cell lung cancer
     Route: 041
     Dates: start: 20200929, end: 20201223
  2. IMFINZI [Suspect]
     Active Substance: DURVALUMAB
     Indication: Small cell lung cancer
     Route: 041
     Dates: start: 20210128, end: 20210225
  3. ETOPOSIDE [Suspect]
     Active Substance: ETOPOSIDE
     Indication: Small cell lung cancer
     Dosage: 100 MG/M 2 MILLIGRAM(S)/SQ. DAY 1, 2, AND 3 OF EACH COURSE
     Route: 041
     Dates: start: 20200929, end: 20201225
  4. CISPLATIN [Suspect]
     Active Substance: CISPLATIN
     Indication: Small cell lung cancer
     Route: 041
     Dates: start: 20200929, end: 20201223
  5. AMLODIPINE [Concomitant]
     Active Substance: AMLODIPINE BESYLATE
     Indication: Hypertension
     Dosage: 2.5 MG AFTER BREAKFAST
     Route: 048
     Dates: start: 20200703
  6. AMLODIPINE [Concomitant]
     Active Substance: AMLODIPINE BESYLATE
     Indication: Hypertension
     Dosage: 2.5 MG AFTER LUNCH
     Route: 048
  7. SODIUM CHLORIDE [Concomitant]
     Active Substance: SODIUM CHLORIDE
     Dosage: 500-1500ML
     Route: 065
     Dates: start: 20200928
  8. AMBROXOL HYDROCHLORIDE OD [Concomitant]
     Dosage: 45 MG AFTER SUPPER
     Route: 048
     Dates: start: 20200908, end: 20201026
  9. POTASSIUM CHLORIDE [Concomitant]
     Active Substance: POTASSIUM CHLORIDE
     Indication: Inappropriate antidiuretic hormone secretion
     Route: 065
     Dates: start: 20200928, end: 20201015
  10. HUSTAZOL [Concomitant]
     Route: 048
     Dates: start: 20201006
  11. HIRUOID [Concomitant]
     Indication: Dry skin
     Dosage: 0.2G-0.5G
     Route: 062
     Dates: start: 20201027
  12. TENELIGLIPTIN [Concomitant]
     Active Substance: TENELIGLIPTIN
     Indication: Type 2 diabetes mellitus
     Dosage: AFTER LUNCH
     Route: 048
     Dates: start: 20201027
  13. CARBAZOCHROME SODIUM SULFONATE HYDRATE [Concomitant]
     Indication: Haemoptysis
     Route: 048
     Dates: start: 20201126, end: 20201130
  14. TSUMURA MASHININGAN EXTRACT [Concomitant]
     Route: 048

REACTIONS (14)
  - Haemoptysis [Recovered/Resolved]
  - Neutrophil count decreased [Recovered/Resolved]
  - Febrile neutropenia [Recovered/Resolved]
  - Pneumonia [Recovering/Resolving]
  - Constipation [Not Recovered/Not Resolved]
  - Anaemia [Recovered/Resolved]
  - Platelet count decreased [Recovered/Resolved]
  - Prostatomegaly [Unknown]
  - Nausea [Recovered/Resolved]
  - Pleural effusion [Not Recovered/Not Resolved]
  - Pyrexia [Recovering/Resolving]
  - Decreased appetite [Recovering/Resolving]
  - Insomnia [Unknown]
  - SARS-CoV-2 test negative [Unknown]

NARRATIVE: CASE EVENT DATE: 20200101
